FAERS Safety Report 8873365 (Version 1)
Quarter: 2012Q4

REPORT INFORMATION
  Report Type: 
  Country: US (occurrence: US)
  Receive Date: 20121023
  Receipt Date: 20121023
  Transmission Date: 20130627
  Serious: No
  Sender: FDA-Public Use
  Company Number: US-ASTELLAS-2012US007980

PATIENT
  Age: 62 Year
  Sex: Female

DRUGS (1)
  1. LEXISCAN [Suspect]
     Indication: SCAN MYOCARDIAL PERFUSION
     Dosage: 0.40 mg, Unknown/D
     Route: 042
     Dates: start: 20120919, end: 20120919

REACTIONS (2)
  - Injection site extravasation [Recovered/Resolved]
  - Pain in extremity [Recovered/Resolved]
